FAERS Safety Report 14173616 (Version 7)
Quarter: 2019Q2

REPORT INFORMATION
  Report Type: Spontaneous
  Country: US (occurrence: US)
  Receive Date: 20171109
  Receipt Date: 20190627
  Transmission Date: 20190711
  Serious: Yes (Hospitalization)
  Sender: FDA-Public Use
  Company Number: US-PFIZER INC-2017481776

PATIENT
  Age: 66 Year
  Sex: Female

DRUGS (4)
  1. PREDNISONE. [Concomitant]
     Active Substance: PREDNISONE
     Dosage: 10 MG, 1X/DAY
     Route: 048
  2. XELJANZ [Suspect]
     Active Substance: TOFACITINIB CITRATE
     Indication: RHEUMATOID ARTHRITIS
     Dosage: 5 MG, 2X/DAY
     Route: 048
     Dates: start: 20171101
  3. XELJANZ [Suspect]
     Active Substance: TOFACITINIB CITRATE
     Indication: ARTHRITIS
     Dosage: 5 MG, 2X/DAY (1 TABLET IN THE MORNING AND 1 TABLET IN THE AFTERNOON)
     Route: 048
     Dates: start: 20171025
  4. FOLIC ACID. [Concomitant]
     Active Substance: FOLIC ACID
     Dosage: 1 DF, DAILY

REACTIONS (8)
  - Upper respiratory tract infection [Recovered/Resolved]
  - Nasal congestion [Recovered/Resolved]
  - Dyspnoea [Unknown]
  - Pruritus [Unknown]
  - Pyrexia [Recovering/Resolving]
  - Cough [Unknown]
  - Chills [Recovering/Resolving]
  - Sputum discoloured [Unknown]

NARRATIVE: CASE EVENT DATE: 201711
